FAERS Safety Report 18408825 (Version 1)
Quarter: 2020Q4

REPORT INFORMATION
  Report Type: Spontaneous
  Country: FR (occurrence: FR)
  Receive Date: 20201021
  Receipt Date: 20201021
  Transmission Date: 20210114
  Serious: Yes (Hospitalization)
  Sender: FDA-Public Use
  Company Number: FR-TEVA-2020-FR-1839767

PATIENT
  Age: 75 Year
  Sex: Male
  Weight: 127 kg

DRUGS (13)
  1. SPIRONOLACTONE. [Suspect]
     Active Substance: SPIRONOLACTONE
     Indication: HYPERTENSION
     Dosage: 25MG
     Route: 048
     Dates: end: 20200615
  2. DOLIPRANE [Concomitant]
     Active Substance: ACETAMINOPHEN
  3. INNOHEP [Concomitant]
     Active Substance: TINZAPARIN SODIUM
  4. ELIQUIS [Concomitant]
     Active Substance: APIXABAN
  5. ALLOPURINOL. [Concomitant]
     Active Substance: ALLOPURINOL
     Dosage: 100MG
  6. PANTOPRAZOLE [Concomitant]
     Active Substance: PANTOPRAZOLE
  7. RAMIPRIL. [Interacting]
     Active Substance: RAMIPRIL
     Indication: HYPERTENSION
     Dosage: 2.5MG
     Route: 048
     Dates: end: 20200615
  8. NEBIVOLOL. [Concomitant]
     Active Substance: NEBIVOLOL
     Dosage: 5MG
  9. FORXIGA 10 MG, COMPRIME PELLICULE [Interacting]
     Active Substance: DAPAGLIFLOZIN PROPANEDIOL
     Indication: TYPE 2 DIABETES MELLITUS
     Dosage: 10MG
     Route: 048
     Dates: start: 20200612, end: 20200615
  10. ATORVASTATINE [Concomitant]
     Active Substance: ATORVASTATIN
     Dosage: 10MG
  11. RESIKALI [Concomitant]
     Active Substance: CALCIUM POLYSTYRENE SULFONATE
  12. LOXEN L P 50 MG, GELULE A LIBERATION PROLONGEE [Concomitant]
     Active Substance: NICARDIPINE HYDROCHLORIDE
     Dosage: 50MG
  13. ZYMAD 80 000 UI, SOLUTION BUVABLE EN AMPOULE [Concomitant]
     Active Substance: CHOLECALCIFEROL
     Dosage: ORAL SOLUTION IN AMPOULE

REACTIONS (2)
  - Drug interaction [Unknown]
  - Acute kidney injury [Recovered/Resolved]

NARRATIVE: CASE EVENT DATE: 20200615
